FAERS Safety Report 6368691-6 (Version None)
Quarter: 2009Q3

REPORT INFORMATION
  Report Type: 
  Country: None (occurrence: None)
  Receive Date: 20090917
  Receipt Date: 20090917
  Transmission Date: 20100115
  Serious: Yes (Hospitalization)
  Sender: FDA-Public Use
  Company Number: None

PATIENT
  Age: 74 Year
  Sex: Female
  Weight: 61.6892 kg

DRUGS (1)
  1. NAMENDA [Suspect]
     Indication: DEMENTIA
     Dosage: 5MG ONCE DAILY PO
     Route: 048
     Dates: start: 20090820, end: 20090823

REACTIONS (3)
  - DELUSION [None]
  - PARANOIA [None]
  - PSYCHOTIC DISORDER [None]
